FAERS Safety Report 10046720 (Version 1)
Quarter: 2014Q1

REPORT INFORMATION
  Report Type: Spontaneous
  Country: FR (occurrence: FR)
  Receive Date: 20140331
  Receipt Date: 20140331
  Transmission Date: 20141002
  Serious: Yes (Other)
  Sender: FDA-Public Use
  Company Number: FR-BAYER-2014-045622

PATIENT
  Age: 20 Year
  Sex: Female

DRUGS (1)
  1. JASMINE [Suspect]
     Dosage: UNK
     Dates: start: 2013

REACTIONS (4)
  - Hyperadrenocorticism [None]
  - Weight increased [None]
  - Blood corticotrophin increased [None]
  - Blood cortisol increased [None]
